FAERS Safety Report 8927964 (Version 2)
Quarter: 2013Q1

REPORT INFORMATION
  Report Type: Spontaneous
  Country: US (occurrence: None)
  Receive Date: 20121119
  Receipt Date: 20121211
  Transmission Date: 20140127
  Serious: Yes (Other)
  Sender: FDA-Public Use
  Company Number: AUR-APL-2012-04830

PATIENT
  Age: 65 Year
  Sex: Male
  Weight: 94 kg

DRUGS (6)
  1. METOPROLOL [Suspect]
     Indication: PRODUCT USED FOR UNKNOWN INDICATION
     Dosage: 25 MG, 2 IN 1 D
  2. MORPHINE SULFATE [Suspect]
     Indication: PRODUCT USED FOR UNKNOWN INDICATION
  3. INLYTA [Suspect]
     Indication: RENAL CANCER
     Dosage: 5 MG, 2 IN 1 D
     Route: 048
  4. LEVOTHYROXINE SODIUM [Suspect]
     Indication: THYROID DISORDER
     Dosage: 1 D
  5. MINOXIDIL (MINOXIDIL) [Suspect]
     Indication: BLOOD PRESSURE ABNORMAL
     Dosage: 5 MG, 2 IN 1 D
  6. DIOVAN (VALSARTAN) [Suspect]
     Indication: BLOOD PRESSURE ABNORMAL
     Dosage: 1 D

REACTIONS (4)
  - Urticaria [None]
  - Rash [None]
  - Pruritus generalised [None]
  - Drug interaction [None]
